FAERS Safety Report 6600528-X (Version None)
Quarter: 2010Q1

REPORT INFORMATION
  Report Type: 
  Country: None (occurrence: None)
  Receive Date: 20100224
  Receipt Date: 20100222
  Transmission Date: 20100710
  Serious: Yes (Death, Hospitalization)
  Sender: FDA-Public Use
  Company Number: GB-MERCK-0911GBR00051

PATIENT
  Age: 7 Year
  Sex: Male

DRUGS (7)
  1. CANCIDAS [Suspect]
     Indication: ASPERGILLOSIS
     Route: 048
  2. VORICONAZOLE [Concomitant]
     Route: 065
  3. AMPHOTERICIN B AND CHOLESTEROL AND DISTEAROYLPHOSPHATIDYLGLYCEROL AND [Concomitant]
     Route: 065
  4. CHLORAMPHENICOL [Concomitant]
     Route: 065
  5. DAPTOMYCIN [Concomitant]
     Route: 065
  6. MEROPENEM [Concomitant]
     Route: 065
  7. CIPROFLOXACIN [Concomitant]
     Route: 065

REACTIONS (5)
  - CHRONIC GRANULOMATOUS DISEASE [None]
  - HEPATIC FUNCTION ABNORMAL [None]
  - MULTI-ORGAN FAILURE [None]
  - PULMONARY HYPERTENSION [None]
  - RENAL IMPAIRMENT [None]
